FAERS Safety Report 12760496 (Version 4)
Quarter: 2016Q4

REPORT INFORMATION
  Report Type: Spontaneous
  Country: IT (occurrence: IT)
  Receive Date: 20160919
  Receipt Date: 20161019
  Transmission Date: 20170207
  Serious: Yes (Death, Hospitalization, Other)
  Sender: FDA-Public Use
  Company Number: PHHY2016IT128076

PATIENT
  Age: 56 Year
  Sex: Female

DRUGS (4)
  1. AFINITOR [Suspect]
     Active Substance: EVEROLIMUS
     Indication: BREAST CANCER
     Dosage: 10 MG, QD
     Route: 048
     Dates: start: 20160526, end: 20160720
  2. AROMASIN [Concomitant]
     Active Substance: EXEMESTANE
     Indication: BREAST CANCER
     Dosage: 25 MG, QD
     Route: 048
     Dates: start: 20160526, end: 20160818
  3. ZOMETA [Suspect]
     Active Substance: ZOLEDRONIC ACID
     Indication: PRODUCT USED FOR UNKNOWN INDICATION
     Route: 065
     Dates: start: 20160518
  4. ZOMETA [Suspect]
     Active Substance: ZOLEDRONIC ACID
     Route: 065
     Dates: start: 20160622

REACTIONS (21)
  - Pneumonitis [Fatal]
  - Bone pain [Unknown]
  - Interstitial lung disease [Unknown]
  - Venous thrombosis limb [Unknown]
  - Pulmonary fibrosis [Fatal]
  - Pyrexia [Fatal]
  - Hyperpyrexia [Fatal]
  - Dyspnoea [Fatal]
  - Cough [Fatal]
  - Malignant neoplasm progression [Unknown]
  - Lung consolidation [Unknown]
  - Respiratory failure [Unknown]
  - Pulmonary embolism [Unknown]
  - Bronchiectasis [Unknown]
  - Breast cancer [Unknown]
  - Pleural effusion [Unknown]
  - Pneumonia [Unknown]
  - Cell marker increased [Unknown]
  - Hypercapnia [Unknown]
  - Weight decreased [Unknown]
  - Syncope [Unknown]

NARRATIVE: CASE EVENT DATE: 201605
